FAERS Safety Report 12486200 (Version 1)
Quarter: 2016Q2

REPORT INFORMATION
  Report Type: Spontaneous
  Country: TR (occurrence: TR)
  Receive Date: 20160621
  Receipt Date: 20160621
  Transmission Date: 20160815
  Serious: Yes (Hospitalization, Other)
  Sender: FDA-Public Use
  Company Number: TR-BAYER-2016-114167

PATIENT
  Age: 62 Year
  Sex: Male

DRUGS (2)
  1. ACETYLSALICYLIC ACID({=100 MG) [Suspect]
     Active Substance: ASPIRIN
     Indication: ISCHAEMIC STROKE
     Dosage: UNK
  2. HEPARIN [Concomitant]
     Active Substance: HEPARIN SODIUM
     Indication: ISCHAEMIC STROKE
     Dosage: UNK

REACTIONS (6)
  - Cerebral artery stenosis [None]
  - Methylenetetrahydrofolate reductase gene mutation [None]
  - Ischaemic stroke [None]
  - Cerebral ischaemia [None]
  - Nuclear magnetic resonance imaging brain abnormal [None]
  - Vertebral artery hypoplasia [None]
